FAERS Safety Report 5045284-4 (Version None)
Quarter: 2006Q3

REPORT INFORMATION
  Report Type: 
  Country: None (occurrence: None)
  Receive Date: 20060707
  Receipt Date: 20051212
  Transmission Date: 20061208
  Serious: Yes (Hospitalization)
  Sender: FDA-Public Use
  Company Number: GB-BRISTOL-MYERS SQUIBB COMPANY-13212410

PATIENT
  Age: 57 Year
  Sex: Female

DRUGS (2)
  1. IXABEPILONE [Suspect]
     Indication: BREAST CANCER
     Dosage: THERAPY START DATE 08-SEP-05. INTERRUPTED.
     Route: 042
     Dates: start: 20051201, end: 20051201
  2. CAPECITABINE [Suspect]
     Indication: BREAST CANCER
     Dosage: THERAPY START DATE 09-SEP-05. INTERRUPTED.
     Route: 048
     Dates: start: 20051202, end: 20051207

REACTIONS (2)
  - DIARRHOEA [None]
  - VOMITING [None]
